FAERS Safety Report 13657349 (Version 1)
Quarter: 2017Q2

REPORT INFORMATION
  Report Type: Spontaneous
  Country: US (occurrence: US)
  Receive Date: 20170615
  Receipt Date: 20170615
  Transmission Date: 20170830
  Serious: No
  Sender: FDA-Public Use
  Company Number: US-PFIZER INC-2017259097

PATIENT
  Sex: Female

DRUGS (1)
  1. XELJANZ [Suspect]
     Active Substance: TOFACITINIB CITRATE
     Dosage: 5 MG, UNK

REACTIONS (9)
  - Photosensitivity reaction [Recovering/Resolving]
  - Synovitis [Recovering/Resolving]
  - Actinic keratosis [Recovering/Resolving]
  - Rosacea [Recovering/Resolving]
  - Lip blister [Recovering/Resolving]
  - Hand deformity [Recovering/Resolving]
  - Arthralgia [Recovering/Resolving]
  - Fibromyalgia [Recovering/Resolving]
  - Dry eye [Recovering/Resolving]
